FAERS Safety Report 5968417-1 (Version None)
Quarter: 2008Q4

REPORT INFORMATION
  Report Type: 
  Country: None (occurrence: None)
  Receive Date: 20081126
  Receipt Date: 20081117
  Transmission Date: 20090506
  Serious: Yes (Hospitalization, Disabling)
  Sender: FDA-Public Use
  Company Number: CN-ASTRAZENECA-2008AP08201

PATIENT
  Age: 48 Year
  Sex: Male
  Weight: 130 kg

DRUGS (1)
  1. NAROPIN [Suspect]
     Indication: SPINAL ANAESTHESIA
     Route: 037
     Dates: start: 20081007, end: 20081007

REACTIONS (1)
  - ABASIA [None]
